FAERS Safety Report 19238879 (Version 1)
Quarter: 2021Q2

REPORT INFORMATION
  Report Type: Spontaneous
  Country: PT (occurrence: PT)
  Receive Date: 20210510
  Receipt Date: 20210510
  Transmission Date: 20210717
  Serious: Yes (Hospitalization)
  Sender: FDA-Public Use
  Company Number: NVSC2021PT100176

PATIENT
  Age: 61 Year
  Sex: Female

DRUGS (17)
  1. PERTUZUMAB. [Suspect]
     Active Substance: PERTUZUMAB
     Indication: BREAST CANCER
     Dosage: 420 UG, TIW
     Route: 042
     Dates: start: 20170213, end: 20170323
  2. OMEPRAZOL [Concomitant]
     Active Substance: OMEPRAZOLE
     Indication: PRODUCT USED FOR UNKNOWN INDICATION
     Dosage: UNK
     Route: 065
     Dates: start: 20170615
  3. DEPAKINE [Concomitant]
     Active Substance: VALPROATE SODIUM
     Indication: PRODUCT USED FOR UNKNOWN INDICATION
     Dosage: UNK
     Route: 065
     Dates: start: 20180319
  4. TRASTUZUMAB. [Suspect]
     Active Substance: TRASTUZUMAB
     Dosage: 6 ?G/KG, TIW (MOST RECENT DOSE PRIOR TO THE EVENT ON10/OCT/2017)
     Route: 042
     Dates: start: 20171010, end: 20180102
  5. TRASTUZUMAB. [Suspect]
     Active Substance: TRASTUZUMAB
     Dosage: 6 ?G/KG, TIW
     Route: 042
     Dates: start: 20190116
  6. DIAZEPAM. [Concomitant]
     Active Substance: DIAZEPAM
     Indication: PRODUCT USED FOR UNKNOWN INDICATION
     Dosage: UNK
     Route: 065
     Dates: start: 20180319
  7. TAZOBACTAM [Concomitant]
     Active Substance: TAZOBACTAM
     Indication: LARGE INTESTINE INFECTION
     Dosage: UNK
     Route: 065
  8. PIPERACILINA [Concomitant]
     Active Substance: PIPERACILLIN
     Indication: LARGE INTESTINE INFECTION
     Dosage: UNK
     Route: 065
  9. DOCETAXEL. [Suspect]
     Active Substance: DOCETAXEL
     Indication: BREAST CANCER
     Dosage: 75 ?G/M2, TIW (MOST RECENT DOSE PRIOR TO THE EVENT: 23/MAR/2017 AND 04/MAY/2017)
     Route: 042
     Dates: start: 20170120
  10. TRASTUZUMAB. [Suspect]
     Active Substance: TRASTUZUMAB
     Dosage: 6 ?G/KG, TIW (MOST RECENT DOSE PRIOR TO THE EVENT 04/MAY/2017)
     Route: 042
     Dates: start: 20170504, end: 20170830
  11. TRASTUZUMAB. [Suspect]
     Active Substance: TRASTUZUMAB
     Dosage: 6 ?G/KG, TIW
     Route: 042
     Dates: start: 20180221, end: 20181218
  12. PERTUZUMAB. [Suspect]
     Active Substance: PERTUZUMAB
     Dosage: 420 UG, TIW (MOST RECENT DOSE PRIOR TO EVENT ON 04/MAY/2017)
     Route: 042
     Dates: start: 20170504, end: 20170731
  13. TRASTUZUMAB. [Suspect]
     Active Substance: TRASTUZUMAB
     Indication: BREAST CANCER
     Dosage: 6 ?G/KG, TIW
     Route: 042
     Dates: start: 20170120, end: 20170323
  14. ZOLEDRONIC ACID [Suspect]
     Active Substance: ZOLEDRONIC ACID
     Indication: BREAST CANCER
     Dosage: 5 ?G/KG, TIW
     Route: 042
     Dates: start: 20180830, end: 20190116
  15. OLANZAPINA [Concomitant]
     Active Substance: OLANZAPINE
     Indication: PRODUCT USED FOR UNKNOWN INDICATION
     Dosage: UNK
     Route: 065
     Dates: start: 20170615, end: 20190401
  16. CAPTOPRIL. [Concomitant]
     Active Substance: CAPTOPRIL
     Indication: PRODUCT USED FOR UNKNOWN INDICATION
     Dosage: UNK
     Route: 065
     Dates: start: 20180313, end: 20190214
  17. ZOLEDRONIC ACID [Suspect]
     Active Substance: ZOLEDRONIC ACID
     Dosage: 5 ?G/KG, TIW
     Route: 042
     Dates: start: 20190221

REACTIONS (2)
  - Influenza [Recovered/Resolved]
  - Respiratory tract infection [Recovered/Resolved]

NARRATIVE: CASE EVENT DATE: 20180121
